FAERS Safety Report 20532302 (Version 1)
Quarter: 2022Q1

REPORT INFORMATION
  Report Type: Spontaneous
  Country: US (occurrence: None)
  Receive Date: 20220301
  Receipt Date: 20220301
  Transmission Date: 20220423
  Serious: Yes (unspecified)
  Sender: FDA-Public Use
  Company Number: None

PATIENT
  Age: 73 Year
  Sex: Male
  Weight: 96 kg

DRUGS (1)
  1. AMOXICILLIN TRIHYDRATE [Suspect]
     Active Substance: AMOXICILLIN
     Indication: Wound infection
     Dosage: 500/125MG TID PO? ?
     Route: 048
     Dates: start: 20211202, end: 20211216

REACTIONS (6)
  - Rash [None]
  - Pruritus [None]
  - Nausea [None]
  - Vomiting [None]
  - Rash [None]
  - Rash [None]

NARRATIVE: CASE EVENT DATE: 20211206
